FAERS Safety Report 13108862 (Version 4)
Quarter: 2017Q1

REPORT INFORMATION
  Report Type: Report from Study
  Country: None (occurrence: US)
  Receive Date: 20170112
  Receipt Date: 20170331
  Transmission Date: 20170428
  Serious: Yes (Death, Hospitalization, Other)
  Sender: FDA-Public Use
  Company Number: US-ABBVIE-17P-163-1834861-00

PATIENT
  Age: 68 Year
  Sex: Female

DRUGS (2)
  1. VENCLEXTA [Suspect]
     Active Substance: VENETOCLAX
     Indication: CHRONIC LYMPHOCYTIC LEUKAEMIA
     Route: 048
     Dates: start: 201610, end: 201611
  2. VENCLEXTA [Suspect]
     Active Substance: VENETOCLAX
     Route: 048
     Dates: start: 20170212

REACTIONS (9)
  - Splenic infection fungal [Recovered/Resolved]
  - Pancytopenia [Recovering/Resolving]
  - Renal injury [Recovering/Resolving]
  - Death [Fatal]
  - Sepsis [Recovering/Resolving]
  - Hepatic infection fungal [Recovered/Resolved]
  - Blood creatinine increased [Recovering/Resolving]
  - Respiratory tract infection fungal [Recovered/Resolved]
  - Mucormycosis [Recovering/Resolving]

NARRATIVE: CASE EVENT DATE: 201611
